FAERS Safety Report 8611697-4 (Version None)
Quarter: 2012Q3

REPORT INFORMATION
  Report Type: 
  Country: None (occurrence: None)
  Receive Date: 20120822
  Receipt Date: 20120807
  Transmission Date: 20120928
  Serious: Yes (Hospitalization, Other)
  Sender: FDA-Public Use
  Company Number: US-ROCHE-1098606

PATIENT
  Sex: Female
  Weight: 95.34 kg

DRUGS (15)
  1. EXCEDRIN (UNITED STATES) [Concomitant]
     Indication: MIGRAINE
  2. LAXATIVES (UNK INGREDIENTS) [Concomitant]
     Indication: GASTROINTESTINAL DISORDER
  3. ALBUTEROL [Concomitant]
  4. NEXIUM [Concomitant]
     Indication: GASTROOESOPHAGEAL REFLUX DISEASE
  5. BENTYL [Concomitant]
     Indication: GASTROINTESTINAL DISORDER
  6. BENTYL [Concomitant]
     Indication: ABDOMINAL PAIN UPPER
  7. PHENERGAN HCL [Concomitant]
     Indication: VOMITING
  8. BENTYL [Concomitant]
     Indication: DIVERTICULITIS
     Dosage: 1 TO 2 MG
     Dates: start: 20090301
  9. BENTYL [Concomitant]
     Indication: COLITIS
  10. PHENERGAN HCL [Concomitant]
     Indication: NAUSEA
  11. KLONOPIN [Suspect]
     Indication: CONVULSION
     Route: 048
  12. NEXIUM [Concomitant]
     Indication: DYSPEPSIA
  13. SYMBICORT [Concomitant]
     Indication: ASTHMA
     Dosage: 160/4.5 MCG
  14. BENADRYL [Concomitant]
     Indication: HYPERSENSITIVITY
  15. DILANTIN [Suspect]
     Indication: CONVULSION
     Dates: end: 20110101

REACTIONS (11)
  - DEPRESSED LEVEL OF CONSCIOUSNESS [None]
  - HEADACHE [None]
  - INFLUENZA [None]
  - CONVULSION [None]
  - EMOTIONAL DISTRESS [None]
  - CERVIX CARCINOMA [None]
  - BRONCHITIS [None]
  - DRUG LEVEL [None]
  - STRESS [None]
  - TOXICITY TO VARIOUS AGENTS [None]
  - ADVERSE DRUG REACTION [None]
